FAERS Safety Report 5669063-X (Version None)
Quarter: 2008Q1

REPORT INFORMATION
  Report Type: 
  Country: None (occurrence: None)
  Receive Date: 20080317
  Receipt Date: 20080306
  Transmission Date: 20080703
  Serious: Yes (Other)
  Sender: FDA-Public Use
  Company Number: US-NOVOPROD-272947

PATIENT
  Age: 53 Year
  Sex: Female

DRUGS (7)
  1. LEVEMIR [Suspect]
     Indication: INSULIN-REQUIRING TYPE 2 DIABETES MELLITUS
     Dosage: UNKNOWN
     Route: 058
     Dates: start: 20070901
  2. METFORMIN [Concomitant]
     Indication: INSULIN-REQUIRING TYPE 2 DIABETES MELLITUS
  3. ACTOS [Concomitant]
  4. CRESTOR [Concomitant]
  5. ALTACE [Concomitant]
  6. TYLENOL W/ CODEINE [Concomitant]
     Indication: PAIN
     Route: 048
  7. CYMBALTA [Concomitant]
     Indication: PAIN IN EXTREMITY

REACTIONS (3)
  - BLOOD GLUCOSE INCREASED [None]
  - DIABETIC NEUROPATHY [None]
  - WEIGHT INCREASED [None]
